FAERS Safety Report 4594423-8 (Version None)
Quarter: 2005Q1

REPORT INFORMATION
  Report Type: 
  Country: None (occurrence: None)
  Receive Date: 20050223
  Receipt Date: 20050210
  Transmission Date: 20050727
  Serious: Yes (Death)
  Sender: FDA-Public Use
  Company Number: S05-USA-00802-01

PATIENT
  Age: 38 Year
  Sex: Male
  Weight: 117.9352 kg

DRUGS (5)
  1. CELEXA [Suspect]
     Dosage: 60 MG QD PO
     Route: 048
     Dates: end: 20040510
  2. CLOZAPINE [Suspect]
     Indication: SCHIZOPHRENIA
     Dosage: 750 MG QD PO
     Route: 048
     Dates: start: 19990701, end: 20040510
  3. DEPAKOTE [Concomitant]
  4. ATIVAN [Concomitant]
  5. PEPCID [Concomitant]

REACTIONS (5)
  - ARRHYTHMIA [None]
  - DRUG INTERACTION [None]
  - DRUG TOXICITY [None]
  - SUDDEN DEATH [None]
  - WHITE BLOOD CELL COUNT INCREASED [None]
